FAERS Safety Report 19065937 (Version 1)
Quarter: 2021Q1

REPORT INFORMATION
  Report Type: Spontaneous
  Country: AU (occurrence: AU)
  Receive Date: 20210327
  Receipt Date: 20210327
  Transmission Date: 20210420
  Serious: Yes (Other)
  Sender: FDA-Public Use
  Company Number: NVSC2021AU063472

PATIENT
  Age: 68 Year
  Sex: Female

DRUGS (1)
  1. MAYZENT [Suspect]
     Active Substance: SIPONIMOD
     Indication: MULTIPLE SCLEROSIS
     Route: 065

REACTIONS (5)
  - Fall [Unknown]
  - Secondary progressive multiple sclerosis [Unknown]
  - Myocardial infarction [Unknown]
  - Loss of consciousness [Unknown]
  - Incoherent [Unknown]
